FAERS Safety Report 8271418-4 (Version None)
Quarter: 2012Q2

REPORT INFORMATION
  Report Type: 
  Country: None (occurrence: None)
  Receive Date: 20120410
  Receipt Date: 20120403
  Transmission Date: 20120825
  Serious: Yes (Life-Threatening, Hospitalization, Other)
  Sender: FDA-Public Use
  Company Number: DE-UCBSA-050928

PATIENT
  Age: 87 Year
  Sex: Male

DRUGS (4)
  1. VIMPAT [Suspect]
     Indication: EPILEPSY
     Route: 048
     Dates: start: 20120101, end: 20120101
  2. ASPIRIN [Concomitant]
     Route: 048
  3. VIMPAT [Suspect]
     Route: 048
     Dates: start: 20111214, end: 20120101
  4. KEPPRA [Suspect]
     Indication: EPILEPSY
     Route: 048

REACTIONS (5)
  - DIZZINESS [None]
  - CONVULSION [None]
  - GAIT DISTURBANCE [None]
  - SUICIDAL IDEATION [None]
  - AGGRESSION [None]
